FAERS Safety Report 9440927 (Version 2)
Quarter: 2013Q3

REPORT INFORMATION
  Report Type: Report from Study
  Country: CA (occurrence: CA)
  Receive Date: 20130805
  Receipt Date: 20130812
  Transmission Date: 20140515
  Serious: Yes (Other)
  Sender: FDA-Public Use
  Company Number: PHHY2013CA083647

PATIENT
  Sex: Male

DRUGS (3)
  1. CLOZARIL [Suspect]
     Indication: SCHIZOPHRENIA
     Dosage: 175 MG, UNK
     Route: 048
     Dates: start: 20100305, end: 20130303
  2. INVEGA SUSTENNA [Concomitant]
     Dosage: UNK UKN, UNK
  3. LATUDA [Concomitant]
     Dosage: UNK UKN, UNK

REACTIONS (5)
  - Metabolic syndrome [Recovering/Resolving]
  - Type 2 diabetes mellitus [Recovering/Resolving]
  - Hypertension [Recovering/Resolving]
  - Weight increased [Recovering/Resolving]
  - Somnolence [Recovering/Resolving]
